FAERS Safety Report 7367880-1 (Version None)
Quarter: 2011Q1

REPORT INFORMATION
  Report Type: 
  Country: None (occurrence: None)
  Receive Date: 20110322
  Receipt Date: 20110311
  Transmission Date: 20110831
  Serious: Yes (Hospitalization)
  Sender: FDA-Public Use
  Company Number: BE-B.I. PHARMACEUTICALS,INC./RIDGEFIELD-2011-BL-00020BL

PATIENT
  Age: 33 Year
  Sex: Female
  Weight: 52 kg

DRUGS (3)
  1. VIRAMUNE [Suspect]
     Indication: HIV INFECTION
     Dosage: 200 MG
     Route: 048
     Dates: start: 20090729
  2. VIRAMUNE [Suspect]
     Dosage: 400 MG
     Route: 048
     Dates: end: 20090907
  3. TRUVADA [Concomitant]
     Route: 048
     Dates: start: 20090729, end: 20090907

REACTIONS (5)
  - LIVER FUNCTION TEST ABNORMAL [None]
  - RASH [None]
  - JAUNDICE [None]
  - PYREXIA [None]
  - PANCREATITIS [None]
